FAERS Safety Report 8018683-6 (Version None)
Quarter: 2012Q1

REPORT INFORMATION
  Report Type: 
  Country: None (occurrence: None)
  Receive Date: 20120103
  Receipt Date: 20120103
  Transmission Date: 20120608
  Serious: Yes (Other)
  Sender: FDA-Public Use
  Company Number: None

PATIENT
  Age: 49 Year
  Sex: Female
  Weight: 70.306 kg

DRUGS (1)
  1. PRAVACHOL [Suspect]
     Indication: BLOOD CHOLESTEROL INCREASED
     Dosage: 10MG
     Route: 048
     Dates: start: 20111031, end: 20111110

REACTIONS (13)
  - DIZZINESS [None]
  - DISTURBANCE IN ATTENTION [None]
  - NAUSEA [None]
  - DYSPNOEA [None]
  - GAIT DISTURBANCE [None]
  - DYSKINESIA [None]
  - HYPOAESTHESIA [None]
  - INSOMNIA [None]
  - MEMORY IMPAIRMENT [None]
  - CHEST PAIN [None]
  - HEADACHE [None]
  - MUSCULAR WEAKNESS [None]
  - PAIN IN EXTREMITY [None]
